FAERS Safety Report 5166121-3 (Version None)
Quarter: 2006Q4

REPORT INFORMATION
  Report Type: 
  Country: None (occurrence: None)
  Receive Date: 20061129
  Receipt Date: 20061115
  Transmission Date: 20070319
  Serious: Yes (Hospitalization, Other)
  Sender: FDA-Public Use
  Company Number: US-2006-014533

PATIENT
  Age: 55 Year
  Sex: Female

DRUGS (3)
  1. BETASERON [Suspect]
     Indication: MULTIPLE SCLEROSIS
     Dosage: 8 MIU, EVERY 2D, SUBCUTANEOUS
     Route: 058
     Dates: start: 20041111, end: 20051028
  2. BETASERON [Suspect]
     Indication: MULTIPLE SCLEROSIS
     Dosage: 8 MIU, EVERY 2D, SUBCUTANEOUS
     Route: 058
     Dates: start: 20051130, end: 20060915
  3. BETASERON [Suspect]
     Indication: MULTIPLE SCLEROSIS
     Dosage: 8 MIU, EVERY 2D, SUBCUTANEOUS
     Route: 058
     Dates: start: 20061015

REACTIONS (19)
  - COLON CANCER [None]
  - CONFUSIONAL STATE [None]
  - DEPRESSION [None]
  - FALL [None]
  - GALLBLADDER DISORDER [None]
  - HEAD INJURY [None]
  - HYPERSOMNIA [None]
  - INCONTINENCE [None]
  - INTERVERTEBRAL DISC PROTRUSION [None]
  - MEMORY IMPAIRMENT [None]
  - MULTIPLE SCLEROSIS [None]
  - MUSCLE STRAIN [None]
  - PAIN [None]
  - PELVIC FRACTURE [None]
  - PROGRESSIVE MULTIPLE SCLEROSIS [None]
  - PUPILLARY REFLEX IMPAIRED [None]
  - SPINAL FRACTURE [None]
  - TEMPERATURE INTOLERANCE [None]
  - WAIST CIRCUMFERENCE INCREASED [None]
